FAERS Safety Report 7382687-7 (Version None)
Quarter: 2011Q1

REPORT INFORMATION
  Report Type: 
  Country: None (occurrence: None)
  Receive Date: 20110330
  Receipt Date: 20110318
  Transmission Date: 20110831
  Serious: Yes (Hospitalization)
  Sender: FDA-Public Use
  Company Number: US-MYLANLABS-2011S1005713

PATIENT
  Age: 69 Year
  Sex: Female

DRUGS (6)
  1. METOPROLOL TARTRATE [Suspect]
     Indication: ARRHYTHMIA
     Route: 048
     Dates: start: 20110101
  2. SYNTHROID [Concomitant]
     Indication: THYROID DISORDER
     Route: 048
     Dates: start: 19910101
  3. METOPROLOL TARTRATE [Suspect]
     Route: 048
     Dates: start: 20110101
  4. METOPROLOL TARTRATE [Suspect]
     Indication: BLOOD PRESSURE DIASTOLIC INCREASED
     Route: 048
     Dates: start: 20110101
  5. METOPROLOL TARTRATE [Suspect]
     Route: 048
     Dates: start: 20110101
  6. ARIMIDEX [Concomitant]
     Indication: BREAST CANCER
     Route: 048
     Dates: start: 20080101

REACTIONS (1)
  - PANCREATITIS CHRONIC [None]
